FAERS Safety Report 6690403-7 (Version None)
Quarter: 2010Q2

REPORT INFORMATION
  Report Type: 
  Country: None (occurrence: None)
  Receive Date: 20100421
  Receipt Date: 20091210
  Transmission Date: 20101027
  Serious: No
  Sender: FDA-Public Use
  Company Number: US-ASTRAZENECA-2008UW03659

PATIENT
  Age: 72 Year
  Sex: Male

DRUGS (3)
  1. CASODEX [Suspect]
     Indication: PROSTATE CANCER
     Route: 048
     Dates: start: 20020101
  2. CASODEX [Suspect]
     Route: 048
     Dates: start: 20081201
  3. ZOLADEX [Suspect]
     Indication: PROSTATIC SPECIFIC ANTIGEN INCREASED
     Route: 058
     Dates: start: 20091101

REACTIONS (6)
  - BENIGN BREAST NEOPLASM [None]
  - BLOOD GLUCOSE INCREASED [None]
  - BREAST TENDERNESS [None]
  - PROSTATIC SPECIFIC ANTIGEN INCREASED [None]
  - TESTICULAR PAIN [None]
  - TESTICULAR SWELLING [None]
